FAERS Safety Report 13468676 (Version 1)
Quarter: 2017Q2

REPORT INFORMATION
  Report Type: Spontaneous
  Country: US (occurrence: US)
  Receive Date: 20170421
  Receipt Date: 20170421
  Transmission Date: 20170830
  Serious: Yes (Other)
  Sender: FDA-Public Use
  Company Number: US-TEVA-760900ACC

PATIENT
  Age: 28 Year
  Sex: Female
  Weight: 64.92 kg

DRUGS (3)
  1. NOVOLOG [Concomitant]
     Active Substance: INSULIN ASPART
     Indication: TYPE 1 DIABETES MELLITUS
  2. SYNTHROID [Concomitant]
     Active Substance: LEVOTHYROXINE SODIUM
     Indication: HYPOTHYROIDISM
  3. PARAGARD T 380A [Suspect]
     Active Substance: COPPER
     Indication: CONTRACEPTION
     Dates: start: 20170209, end: 20170309

REACTIONS (1)
  - Device dislocation [Recovered/Resolved]

NARRATIVE: CASE EVENT DATE: 20170309
